FAERS Safety Report 5227282-0 (Version None)
Quarter: 2007Q1

REPORT INFORMATION
  Report Type: 
  Country: None (occurrence: None)
  Receive Date: 20070202
  Receipt Date: 20070123
  Transmission Date: 20070707
  Serious: Yes (Life-Threatening)
  Sender: FDA-Public Use
  Company Number: JP-ROCHE-475596

PATIENT
  Age: 72 Year
  Sex: Female
  Weight: 40 kg

DRUGS (5)
  1. XELODA [Suspect]
     Indication: BREAST CANCER METASTATIC
     Dosage: TWO WEEKS ADMINISTRATION FOLLOWED BY ONE WEEK REST.
     Route: 048
     Dates: start: 20061108, end: 20061122
  2. FURTULON [Suspect]
     Indication: BREAST CANCER
     Route: 048
     Dates: start: 20040915, end: 20060315
  3. ENDOXAN [Suspect]
     Indication: BREAST CANCER METASTATIC
     Route: 048
     Dates: start: 20040915, end: 20060315
  4. ENDOXAN [Suspect]
     Dosage: 2 WEEKS ADMINISTRATION FOLLOWED BY 1 WEEKS REST
     Route: 048
     Dates: start: 20061108, end: 20061115
  5. HYSRON [Concomitant]
     Indication: BREAST CANCER
     Dosage: ADMINISTERED BETWEEN SEP-04 AND MAR-06 RESTARTED 8-NOV-2006 TWO WEEKS ADMINISTRATION FOLLOWED BY ON+
     Route: 048
     Dates: start: 20040915

REACTIONS (1)
  - INTERSTITIAL LUNG DISEASE [None]
